FAERS Safety Report 10059741 (Version 2)
Quarter: 2014Q2

REPORT INFORMATION
  Report Type: Spontaneous
  Country: US (occurrence: US)
  Receive Date: 20140404
  Receipt Date: 20140423
  Transmission Date: 20141212
  Serious: No
  Sender: FDA-Public Use
  Company Number: US-009507513-1404USA001950

PATIENT
  Age: 47 Year
  Sex: Male

DRUGS (1)
  1. AMITRIPTYLINE HYDROCHLORIDE [Suspect]
     Dosage: SUBSTANCE ABUSE, BINGE
     Route: 048

REACTIONS (2)
  - Intentional overdose [Unknown]
  - Intentional product misuse [Unknown]
